FAERS Safety Report 15417363 (Version 1)
Quarter: 2018Q3

REPORT INFORMATION
  Report Type: Spontaneous
  Country: US (occurrence: US)
  Receive Date: 20180924
  Receipt Date: 20180924
  Transmission Date: 20181010
  Serious: No
  Sender: FDA-Public Use
  Company Number: US-AUROBINDO-AUR-APU-2018-042304

PATIENT

DRUGS (1)
  1. AMIODARONE HYDROCHLORIDE 200 MG TABLET [Suspect]
     Active Substance: AMIODARONE HYDROCHLORIDE
     Indication: ARRHYTHMIA
     Dosage: TWO PILLS PER DAY
     Route: 065
     Dates: start: 20180802

REACTIONS (2)
  - Photophobia [Not Recovered/Not Resolved]
  - Visual impairment [Not Recovered/Not Resolved]

NARRATIVE: CASE EVENT DATE: 20180813
